FAERS Safety Report 21693243 (Version 1)
Quarter: 2022Q4

REPORT INFORMATION
  Report Type: Report from Study
  Country: EG (occurrence: EG)
  Receive Date: 20221207
  Receipt Date: 20221207
  Transmission Date: 20230113
  Serious: Yes (Other)
  Sender: FDA-Public Use
  Company Number: EG-002147023-NVSC2022EG281033

PATIENT
  Sex: Male

DRUGS (6)
  1. OMNITROPE [Suspect]
     Active Substance: SOMATROPIN
     Indication: Growth hormone deficiency
     Dosage: 0.9 MG, QD (10 MG/1.5 ML) (STOPPED 06 TO 07 MONTHS AGO)
     Route: 058
     Dates: start: 20201201
  2. OMNITROPE [Suspect]
     Active Substance: SOMATROPIN
     Dosage: 1.8 MG, QD (5 MG/1.5 ML) (STARTED 06 TO 07 MONTHS AGO)
     Route: 058
  3. PENTASA [Concomitant]
     Active Substance: MESALAMINE
     Indication: Hypersensitivity
     Dosage: 3 DOSAGE FORM, QD (STARTED 6 OR 7 MONTHS AGO)
     Route: 048
  4. PENTASA [Concomitant]
     Active Substance: MESALAMINE
     Indication: Functional gastrointestinal disorder
  5. VITAMIN D [Concomitant]
     Active Substance: VITAMIN D NOS
     Indication: Vitamin supplementation
     Dosage: ( STARTED BY 0.5 DROPPER THEN TAKEN AS 1 DROPPER, THEN CHANGED TO ANOTHER IMPORTED DRUG TAKEN AS ONE
     Route: 048
  6. COLCHICINE [Concomitant]
     Active Substance: COLCHICINE
     Indication: Brucellosis
     Dosage: 0.5 UNK, BID (STARTED APPROXIMATELY ONE MONTH BEFORE STARTING OMNITROPE AND TAKEN FOR APPROXIMATELY
     Route: 048

REACTIONS (10)
  - Colitis [Recovered/Resolved]
  - Oesophagitis [Recovered/Resolved]
  - Weight decreased [Recovered/Resolved]
  - Abdominal discomfort [Recovered/Resolved]
  - Abdominal pain [Recovered/Resolved]
  - Diarrhoea [Recovered/Resolved]
  - Nocturia [Not Recovered/Not Resolved]
  - Product availability issue [Not Recovered/Not Resolved]
  - Poor quality device used [Not Recovered/Not Resolved]
  - Wrong technique in device usage process [Not Recovered/Not Resolved]

NARRATIVE: CASE EVENT DATE: 20220101
